FAERS Safety Report 8287264-1 (Version None)
Quarter: 2012Q2

REPORT INFORMATION
  Report Type: 
  Country: None (occurrence: None)
  Receive Date: 20120416
  Receipt Date: 20120416
  Transmission Date: 20120825
  Serious: Yes (Other)
  Sender: FDA-Public Use
  Company Number: None

PATIENT
  Age: 3 Year
  Sex: Female
  Weight: 15.422 kg

DRUGS (3)
  1. SINGULAIR [Suspect]
     Indication: MULTIPLE ALLERGIES
     Dosage: 1 TABLET
     Route: 048
     Dates: start: 20120404, end: 20120405
  2. ANTIBIOTIC [Concomitant]
  3. PEDIAPRED [Concomitant]
     Route: 048

REACTIONS (5)
  - HOSTILITY [None]
  - CRYING [None]
  - AGGRESSION [None]
  - ABNORMAL DREAMS [None]
  - MOOD ALTERED [None]
